FAERS Safety Report 19441309 (Version 1)
Quarter: 2021Q2

REPORT INFORMATION
  Report Type: Spontaneous
  Country: US (occurrence: US)
  Receive Date: 20210621
  Receipt Date: 20210621
  Transmission Date: 20210717
  Serious: No
  Sender: FDA-Public Use
  Company Number: US-JNJFOC-20210617042

PATIENT
  Age: 70 Year
  Sex: Female

DRUGS (2)
  1. FLUTICASONE. [Interacting]
     Active Substance: FLUTICASONE
     Indication: SINUSITIS
     Route: 065
  2. TYLENOL 8 HR ARTHRITIS PAIN [Suspect]
     Active Substance: ACETAMINOPHEN
     Indication: HEADACHE
     Dosage: TWO CAPLETS, ONCE
     Route: 048
     Dates: start: 20210605

REACTIONS (7)
  - Drug interaction [Unknown]
  - Rhinorrhoea [Not Recovered/Not Resolved]
  - Throat irritation [Not Recovered/Not Resolved]
  - Epistaxis [Not Recovered/Not Resolved]
  - Nausea [Unknown]
  - Nasal discomfort [Not Recovered/Not Resolved]
  - Enanthema [Not Recovered/Not Resolved]

NARRATIVE: CASE EVENT DATE: 20210605
